FAERS Safety Report 10080702 (Version 2)
Quarter: 2014Q2

REPORT INFORMATION
  Report Type: Spontaneous
  Country: US (occurrence: US)
  Receive Date: 20140416
  Receipt Date: 20140626
  Transmission Date: 20141212
  Serious: No
  Sender: FDA-Public Use
  Company Number: US-009507513-1404USA005248

PATIENT
  Age: 29 Year
  Sex: Female
  Weight: 112.47 kg

DRUGS (2)
  1. NEXPLANON [Suspect]
     Indication: CONTRACEPTION
     Dosage: 1 ROD,
     Route: 059
     Dates: start: 20140407, end: 20140407
  2. NEXPLANON [Suspect]
     Dosage: 1 UNK, UNK
     Route: 058
     Dates: start: 20140407, end: 20140408

REACTIONS (2)
  - Device difficult to use [Recovered/Resolved]
  - No adverse event [Unknown]
